FAERS Safety Report 7506954-9 (Version None)
Quarter: 2011Q2

REPORT INFORMATION
  Report Type: 
  Country: None (occurrence: None)
  Receive Date: 20110526
  Receipt Date: 20110516
  Transmission Date: 20111010
  Serious: Yes (Other)
  Sender: FDA-Public Use
  Company Number: US-BAYER-2011-018674

PATIENT
  Sex: Male

DRUGS (2)
  1. LEVITRA [Suspect]
     Dosage: 10 MG, QD
     Route: 048
     Dates: start: 20110101, end: 20110102
  2. GLUCOSAMINE [Concomitant]
     Dosage: 500 MG, UNK

REACTIONS (6)
  - ROAD TRAFFIC ACCIDENT [None]
  - ABDOMINAL DISCOMFORT [None]
  - BLINDNESS [None]
  - EMOTIONAL DISORDER [None]
  - OCULAR DYSMETRIA [None]
  - VISUAL IMPAIRMENT [None]
